FAERS Safety Report 7820830-3 (Version None)
Quarter: 2011Q4

REPORT INFORMATION
  Report Type: 
  Country: None (occurrence: None)
  Receive Date: 20111018
  Receipt Date: 20111012
  Transmission Date: 20120403
  Serious: No
  Sender: FDA-Public Use
  Company Number: US-ELI_LILLY_AND_COMPANY-US201110003434

PATIENT
  Age: 51 Year
  Sex: Male

DRUGS (1)
  1. CIALIS [Suspect]
     Indication: ERECTILE DYSFUNCTION
     Dosage: 10 MG, PRN

REACTIONS (6)
  - HYPERTENSION [None]
  - HYPOAESTHESIA [None]
  - VISION BLURRED [None]
  - HYPOAESTHESIA ORAL [None]
  - BLOOD GLUCOSE INCREASED [None]
  - DIZZINESS [None]
